FAERS Safety Report 24578073 (Version 1)
Quarter: 2024Q4

REPORT INFORMATION
  Report Type: Spontaneous
  Country: FR (occurrence: FR)
  Receive Date: 20241104
  Receipt Date: 20241104
  Transmission Date: 20250115
  Serious: Yes (Hospitalization)
  Sender: JOHNSON AND JOHNSON
  Company Number: None

PATIENT
  Age: 54 Year
  Sex: Female
  Weight: 55 kg

DRUGS (3)
  1. RYBREVANT [Suspect]
     Active Substance: AMIVANTAMAB-VMJW
     Indication: Non-small cell lung cancer
     Dosage: 350 MG INFUSED IN 50ML/H FOR 2 HOURS THEN 25ML/H FOR 2 HOURS
     Route: 042
     Dates: start: 20240806, end: 20240806
  2. RYBREVANT [Suspect]
     Active Substance: AMIVANTAMAB-VMJW
     Dosage: ADMINISTERED AT 10 ML/HOUR 1 HOUR THEN 20 ML/H 1 HOUR THEN 33 ML/HOUR 2 HOURS THEN 50 ML/H 2 HOURS.
     Route: 042
     Dates: start: 20240807
  3. LEVOTHYROXINE [Concomitant]
     Active Substance: LEVOTHYROXINE
     Indication: Product used for unknown indication
     Dosage: 100 MICROGRAMS
     Route: 065

REACTIONS (3)
  - Infusion related reaction [Recovered/Resolved]
  - Oxygen saturation decreased [Recovered/Resolved]
  - Cough [Recovered/Resolved]

NARRATIVE: CASE EVENT DATE: 20240806
